FAERS Safety Report 9527824 (Version 1)
Quarter: 2013Q1

REPORT INFORMATION
  Report Type: Spontaneous
  Country: US (occurrence: None)
  Receive Date: 20130314
  Receipt Date: 20130314
  Transmission Date: 20140127
  Serious: No
  Sender: FDA-Public Use
  Company Number: 1211USA000270

PATIENT
  Age: 60 Year
  Sex: Female

DRUGS (3)
  1. PEG-INTRON (PEGINTERFERON ALFA-2B) POWDER FOR INJECTION [Suspect]
     Indication: HEPATITIS C
     Dates: start: 20121016, end: 20121030
  2. RIBAVIRIN (RIBAVIRIN) CAPSULE [Suspect]
     Indication: HEPATITIS C
     Route: 048
     Dates: start: 20121016
  3. VICTRELLIS [Suspect]
     Indication: HEPATITIS C
     Route: 048
     Dates: start: 20130108

REACTIONS (15)
  - Immune system disorder [None]
  - Fatigue [None]
  - Somnolence [None]
  - Fatigue [None]
  - Cyst [None]
  - Vulvovaginal mycotic infection [None]
  - Eye infection [None]
  - Confusional state [None]
  - Neck pain [None]
  - Pain [None]
  - Back pain [None]
  - Dysgeusia [None]
  - Skin infection [None]
  - Leukopenia [None]
  - Anxiety [None]
